FAERS Safety Report 16747871 (Version 1)
Quarter: 2019Q3

REPORT INFORMATION
  Report Type: Spontaneous
  Country: BE (occurrence: BE)
  Receive Date: 20190827
  Receipt Date: 20190827
  Transmission Date: 20191005
  Serious: Yes (Other)
  Sender: FDA-Public Use
  Company Number: BE-SHIRE-BE201927715

PATIENT

DRUGS (1)
  1. 555 (PRUCALOPRIDE) [Suspect]
     Active Substance: PRUCALOPRIDE
     Indication: IMPAIRED GASTRIC EMPTYING
     Dosage: 2 MILLIGRAM, UNKNOWN
     Route: 065

REACTIONS (1)
  - Respiratory tract infection [Unknown]
